FAERS Safety Report 18569090 (Version 1)
Quarter: 2020Q4

REPORT INFORMATION
  Report Type: Spontaneous
  Country: QA (occurrence: AE)
  Receive Date: 20201202
  Receipt Date: 20201202
  Transmission Date: 20210114
  Serious: Yes (Other)
  Sender: FDA-Public Use
  Company Number: QA-ASTRAZENECA-2020SF58066

PATIENT
  Sex: Female

DRUGS (1)
  1. SYMBICORT [Suspect]
     Active Substance: BUDESONIDE\FORMOTEROL FUMARATE DIHYDRATE
     Indication: ASTHMA
     Dosage: 160 MCG UNKNOWN UNKNOWN
     Route: 055

REACTIONS (4)
  - Overdose [Unknown]
  - Diarrhoea [Unknown]
  - Palpitations [Unknown]
  - Tachycardia [Unknown]
